FAERS Safety Report 5376297-0 (Version None)
Quarter: 2007Q2

REPORT INFORMATION
  Report Type: 
  Country: None (occurrence: None)
  Receive Date: 20070628
  Receipt Date: 20070619
  Transmission Date: 20071010
  Serious: Yes (Death, Hospitalization)
  Sender: FDA-Public Use
  Company Number: 2007-02926

PATIENT
  Age: 19 Year
  Sex: Male

DRUGS (4)
  1. COLCHICINE (WATSON LABORATORIES) (COLCHICINE) TABLET, 0.6MG [Suspect]
     Indication: COMPLETED SUICIDE
     Dosage: ORAL
     Route: 048
     Dates: start: 20070101, end: 20070101
  2. NSAID'S [Suspect]
     Indication: COMPLETED SUICIDE
  3. AUGMENTIN '125' [Concomitant]
     Indication: COMPLETED SUICIDE
  4. AMOXICILLIN [Concomitant]
     Indication: COMPLETED SUICIDE

REACTIONS (8)
  - ABDOMINAL PAIN [None]
  - ACIDOSIS [None]
  - CARDIAC ARREST [None]
  - DEPRESSED LEVEL OF CONSCIOUSNESS [None]
  - DIARRHOEA [None]
  - HYPOTENSION [None]
  - RENAL FAILURE ACUTE [None]
  - VOMITING [None]
